FAERS Safety Report 24570114 (Version 2)
Quarter: 2024Q4

REPORT INFORMATION
  Report Type: Spontaneous
  Country: US (occurrence: US)
  Receive Date: 20241031
  Receipt Date: 20241119
  Transmission Date: 20250114
  Serious: No
  Sender: ROCHE
  Company Number: US-ROCHE-10000119384

PATIENT
  Age: 53 Year
  Sex: Male
  Weight: 83.91 kg

DRUGS (8)
  1. XOLAIR [Suspect]
     Active Substance: OMALIZUMAB
     Indication: Chronic spontaneous urticaria
     Dosage: TOOK  2 150 MG SYRINGES.
     Route: 058
     Dates: start: 20181009, end: 20240526
  2. XOLAIR [Suspect]
     Active Substance: OMALIZUMAB
     Dosage: TOOK 1 300 MG / 2ML SYRINGE
     Route: 058
     Dates: start: 20240625, end: 202409
  3. XOLAIR [Suspect]
     Active Substance: OMALIZUMAB
     Dosage: TAKES 2 150 MG SYRINGES.
     Route: 058
     Dates: start: 20240919
  4. EPIPEN [Concomitant]
     Active Substance: EPINEPHRINE
     Indication: Anaphylaxis prophylaxis
     Dosage: HAS NOT HAD TO USE IT SO FAR.
     Route: 030
     Dates: start: 20181009
  5. LISINOPRIL [Concomitant]
     Active Substance: LISINOPRIL
     Indication: Hypertension
     Route: 048
  6. NOVOLOG [Concomitant]
     Active Substance: INSULIN ASPART
     Indication: Diabetes mellitus
     Route: 058
     Dates: start: 20180530
  7. ROSUVASTATIN [Concomitant]
     Active Substance: ROSUVASTATIN
     Indication: Hyperlipidaemia
     Route: 048
     Dates: start: 20220214
  8. VITAMIN D3 [Concomitant]
     Active Substance: CHOLECALCIFEROL
     Indication: Diabetes mellitus
     Route: 048
     Dates: start: 20180226

REACTIONS (2)
  - Drug ineffective [Unknown]
  - Hyperlipidaemia [Not Recovered/Not Resolved]

NARRATIVE: CASE EVENT DATE: 20240701
